FAERS Safety Report 4377970-3 (Version None)
Quarter: 2004Q2

REPORT INFORMATION
  Report Type: 
  Country: None (occurrence: None)
  Receive Date: 20040601
  Receipt Date: 20040216
  Transmission Date: 20050107
  Serious: No
  Sender: FDA-Public Use
  Company Number: WAES 0402USA01157

PATIENT
  Age: 73 Year
  Sex: Female

DRUGS (12)
  1. ZETIA [Suspect]
     Indication: HYPERCHOLESTEROLAEMIA
     Dosage: 10MG/DAILY/PO
     Route: 048
     Dates: start: 20031120
  2. ADVAIR DISKUS 100/50 [Concomitant]
  3. CRESTOR [Concomitant]
  4. HYDRODIURIL [Concomitant]
  5. K-DUR 10 [Concomitant]
  6. LIPITOR [Concomitant]
  7. NORVASC [Concomitant]
  8. PREMARIN [Concomitant]
  9. WELLBUTRIN [Concomitant]
  10. XALATAN [Concomitant]
  11. ALBUTEROL [Concomitant]
  12. GASTROINTESTINAL PREPARATIONS [Concomitant]

REACTIONS (1)
  - CONFUSIONAL STATE [None]
